FAERS Safety Report 6915971-9 (Version None)
Quarter: 2010Q3

REPORT INFORMATION
  Report Type: 
  Country: None (occurrence: None)
  Receive Date: 20100809
  Receipt Date: 20100809
  Transmission Date: 20110219
  Serious: Yes (Hospitalization)
  Sender: FDA-Public Use
  Company Number: None

PATIENT
  Age: 51 Year
  Sex: Female
  Weight: 81 kg

DRUGS (16)
  1. WARFARIN SODIUM [Suspect]
     Indication: AORTIC VALVE REPLACEMENT
     Dosage: 5 MG DAILY PO ; PRIOR TO ADMISSION
     Route: 048
  2. ASPIRIN [Concomitant]
  3. CARBIDOPA AND LEVODOPA [Concomitant]
  4. CHLORPROMAZINE [Concomitant]
  5. CITALOPRAM [Concomitant]
  6. CYCLOBENZAPRINE [Concomitant]
  7. FLUVASTATIN [Concomitant]
  8. LISINOPRIL AND HYDROCHLOROTHIAZIDE [Concomitant]
  9. TRIAMETERENE/HCTZ [Concomitant]
  10. OXYCODONE [Concomitant]
  11. PANTOPRAZOLE [Concomitant]
  12. POLYETHYLENE GLYCOL [Concomitant]
  13. QUETIAPINE [Concomitant]
  14. TEMEZAPEM [Concomitant]
  15. TRAZODONE HCL [Concomitant]
  16. VENLAFAXINE [Concomitant]

REACTIONS (3)
  - GASTRITIS [None]
  - HAEMORRHOIDS [None]
  - INTERNATIONAL NORMALISED RATIO INCREASED [None]
